FAERS Safety Report 20921856 (Version 7)
Quarter: 2023Q1

REPORT INFORMATION
  Report Type: Report from Study
  Country: US (occurrence: US)
  Receive Date: 20220607
  Receipt Date: 20230208
  Transmission Date: 20230418
  Serious: Yes (Other)
  Sender: FDA-Public Use
  Company Number: US-BRISTOL-MYERS SQUIBB COMPANY-2022-048285

PATIENT
  Age: 64 Year
  Sex: Male
  Weight: 88.904 kg

DRUGS (5)
  1. REVLIMID [Suspect]
     Active Substance: LENALIDOMIDE
     Indication: Plasma cell myeloma
     Dosage: DAILY DAYS 1-21 EVERY 28 DAYS
     Route: 048
     Dates: start: 20211109
  2. REVLIMID [Suspect]
     Active Substance: LENALIDOMIDE
     Dosage: D1-D21 Q 28 DAYS
     Route: 048
     Dates: start: 20220401
  3. REVLIMID [Suspect]
     Active Substance: LENALIDOMIDE
     Dosage: FREQUENCY:  DAILY FOR 21 DAYS, THEN 7 ?DAYS OFF.
     Route: 048
     Dates: start: 20220825
  4. ASPIRIN [Concomitant]
     Active Substance: ASPIRIN
     Indication: Product used for unknown indication
  5. METOPROLOL TARTRATE [Concomitant]
     Active Substance: METOPROLOL TARTRATE
     Indication: Product used for unknown indication

REACTIONS (20)
  - Rib fracture [Not Recovered/Not Resolved]
  - Spinal fracture [Not Recovered/Not Resolved]
  - Tachycardia [Recovering/Resolving]
  - Abdominal pain upper [Not Recovered/Not Resolved]
  - Nausea [Unknown]
  - COVID-19 [Unknown]
  - Back pain [Not Recovered/Not Resolved]
  - Pruritus [Not Recovered/Not Resolved]
  - Limb injury [Not Recovered/Not Resolved]
  - Faeces discoloured [Not Recovered/Not Resolved]
  - Decreased appetite [Not Recovered/Not Resolved]
  - Influenza [Not Recovered/Not Resolved]
  - Diarrhoea [Unknown]
  - Extrasystoles [Recovering/Resolving]
  - Cardiac disorder [Recovering/Resolving]
  - Rash [Unknown]
  - Skin exfoliation [Unknown]
  - Illness [Unknown]
  - Psychomotor hyperactivity [Unknown]
  - Dyspnoea [Unknown]

NARRATIVE: CASE EVENT DATE: 20220101
